FAERS Safety Report 15892698 (Version 1)
Quarter: 2019Q1

REPORT INFORMATION
  Report Type: Report from Study
  Country: US (occurrence: US)
  Receive Date: 20190130
  Receipt Date: 20190130
  Transmission Date: 20190417
  Serious: No
  Sender: FDA-Public Use
  Company Number: US-EXELIXIS-CABO-18017061

PATIENT
  Age: 44 Year
  Sex: Male
  Weight: 73.56 kg

DRUGS (1)
  1. CABOMETYX [Suspect]
     Active Substance: CABOZANTINIB S-MALATE
     Indication: RENAL CANCER
     Dosage: 60 MG, QD
     Route: 048
     Dates: start: 20181103, end: 20181119

REACTIONS (14)
  - Muscle spasms [Unknown]
  - Rash [Unknown]
  - Feeling cold [Unknown]
  - Fatigue [Unknown]
  - Eructation [Unknown]
  - Mouth swelling [Unknown]
  - Dysgeusia [Unknown]
  - Nervousness [Unknown]
  - Pruritus generalised [Unknown]
  - Vomiting [Unknown]
  - Pain in extremity [Unknown]
  - Cough [Unknown]
  - Stomatitis [Unknown]
  - Weight decreased [Unknown]

NARRATIVE: CASE EVENT DATE: 201811
